FAERS Safety Report 8106647 (Version 4)
Quarter: 2014Q3

REPORT INFORMATION
  Report Type: Spontaneous
  Country: US (occurrence: US)
  Receive Date: 20110825
  Receipt Date: 20140717
  Transmission Date: 20150326
  Serious: Yes (Hospitalization)
  Sender: FDA-Public Use
  Company Number: US-GLAXOSMITHKLINE-A0942200A

PATIENT
  Age: 74 Year
  Sex: Male
  Weight: 105 kg

DRUGS (2)
  1. AVANDARYL [Suspect]
     Active Substance: GLIMEPIRIDE\ROSIGLITAZONE MALEATE
     Indication: DIABETES MELLITUS
     Route: 048
     Dates: start: 20060330, end: 201002
  2. AVANDIA [Suspect]
     Active Substance: ROSIGLITAZONE MALEATE
     Indication: DIABETES MELLITUS
     Route: 048
     Dates: start: 2006, end: 2010

REACTIONS (6)
  - Pulmonary embolism [Unknown]
  - Atrioventricular block [Not Recovered/Not Resolved]
  - Hip fracture [Unknown]
  - Dyspnoea [Unknown]
  - Atrioventricular block second degree [Unknown]
  - Fatigue [Unknown]

NARRATIVE: CASE EVENT DATE: 200910
